FAERS Safety Report 4548993-6 (Version None)
Quarter: 2004Q4

REPORT INFORMATION
  Report Type: 
  Country: None (occurrence: None)
  Receive Date: 20041227
  Receipt Date: 20041012
  Transmission Date: 20050328
  Serious: No
  Sender: FDA-Public Use
  Company Number: 04P-163-0277004-00

PATIENT
  Age: 33 Year
  Sex: Female
  Weight: 53.5244 kg

DRUGS (7)
  1. HUMIRA [Suspect]
     Indication: RHEUMATOID ARTHRITIS
     Dosage: 40 MG, 1 IN 2 WK, SUBCUTANEOUS
     Route: 058
     Dates: start: 20040930
  2. LORAZEPAM [Concomitant]
  3. INSULIN [Concomitant]
  4. METHOTREXATE [Concomitant]
  5. FOLIC ACID [Concomitant]
  6. VICODIN [Concomitant]
  7. VITAMIN CAP [Concomitant]

REACTIONS (5)
  - ANOREXIA [None]
  - CONDITION AGGRAVATED [None]
  - DEPRESSION [None]
  - FATIGUE [None]
  - HEADACHE [None]
